FAERS Safety Report 10195410 (Version 1)
Quarter: 2014Q2

REPORT INFORMATION
  Report Type: Report from Study
  Country: US (occurrence: US)
  Receive Date: 20140526
  Receipt Date: 20140526
  Transmission Date: 20141212
  Serious: Yes (Life-Threatening, Hospitalization, Other)
  Sender: FDA-Public Use
  Company Number: US-ASTRAZENECA-2014SE35481

PATIENT
  Age: 69 Year
  Sex: Female
  Weight: 59 kg

DRUGS (8)
  1. TENORMIN [Suspect]
     Indication: BLOOD PRESSURE
     Dosage: 50 MG AT BEDTIME
     Route: 048
  2. NEXIUM [Suspect]
     Indication: BARRETT^S OESOPHAGUS
     Route: 048
     Dates: start: 20071209
  3. NEXIUM [Suspect]
     Indication: EROSIVE OESOPHAGITIS
     Route: 048
     Dates: start: 20071209
  4. NEXIUM [Suspect]
     Indication: GASTRITIS EROSIVE
     Route: 048
     Dates: start: 20071209
  5. NEXIUM [Suspect]
     Indication: BARRETT^S OESOPHAGUS
     Route: 048
  6. NEXIUM [Suspect]
     Indication: EROSIVE OESOPHAGITIS
     Route: 048
  7. NEXIUM [Suspect]
     Indication: GASTRITIS EROSIVE
     Route: 048
  8. PRILOSEC [Suspect]
     Route: 048

REACTIONS (37)
  - Cardiac arrest [Unknown]
  - Respiratory arrest [Unknown]
  - Oesophageal haemorrhage [Unknown]
  - Eye haemorrhage [Unknown]
  - Transplant rejection [Unknown]
  - Bone disorder [Unknown]
  - Mallory-Weiss syndrome [Unknown]
  - Gastrointestinal disorder [Unknown]
  - Gastrointestinal pain [Unknown]
  - Dyspepsia [Unknown]
  - Hypertension [Unknown]
  - Dehydration [Unknown]
  - Adverse event [Unknown]
  - Pneumonia [Unknown]
  - Dysphagia [Unknown]
  - Choking [Unknown]
  - Barrett^s oesophagus [Unknown]
  - Helicobacter infection [Unknown]
  - Gastric ulcer [Unknown]
  - Palatal disorder [Not Recovered/Not Resolved]
  - Oral pain [Unknown]
  - Clostridium difficile infection [Unknown]
  - Nervousness [Unknown]
  - Vitreous floaters [Unknown]
  - Condition aggravated [Unknown]
  - Procedural pain [Unknown]
  - Vomiting [Unknown]
  - Abdominal pain upper [Unknown]
  - Abdominal discomfort [Unknown]
  - Photopsia [Unknown]
  - Gastrooesophageal reflux disease [Unknown]
  - Visual impairment [Unknown]
  - Insomnia [Unknown]
  - Drug ineffective [Unknown]
  - Off label use [Unknown]
  - Off label use [Unknown]
  - Drug ineffective [Unknown]
